FAERS Safety Report 4796048-8 (Version None)
Quarter: 2005Q3

REPORT INFORMATION
  Report Type: 
  Country: None (occurrence: None)
  Receive Date: 20050920
  Receipt Date: 20040913
  Transmission Date: 20060218
  Serious: Yes (Hospitalization)
  Sender: FDA-Public Use
  Company Number: US-JNJFOC-20040810101

PATIENT
  Age: 76 Year
  Sex: Male

DRUGS (6)
  1. DITROPAN XL [Suspect]
     Indication: POLLAKIURIA
     Dosage: 10 MG, ORAL
     Route: 048
     Dates: start: 20020101
  2. GLUCOVANCE [Concomitant]
  3. ACTOSE (PIOGLITAZONE) [Concomitant]
  4. MULTIVITAMIN [Concomitant]
  5. CALCIUM (CALCIUM) [Concomitant]
  6. AVALIDE (KARVEA HCT) [Concomitant]

REACTIONS (1)
  - FATIGUE [None]
